FAERS Safety Report 18562737 (Version 2)
Quarter: 2020Q4

REPORT INFORMATION
  Report Type: Report from Study
  Country: US (occurrence: US)
  Receive Date: 20201201
  Receipt Date: 20201211
  Transmission Date: 20210114
  Serious: Yes (Other)
  Sender: FDA-Public Use
  Company Number: US-HORIZON-2020HZN00486

PATIENT
  Sex: Male

DRUGS (5)
  1. LANTUS [Concomitant]
     Active Substance: INSULIN GLARGINE
     Indication: DIABETES MELLITUS
     Dosage: (32[ARB^U])
  2. JARDIANCEEMPAGLIFLOZINEMPAGLIFLOZINJARDIANCE [Concomitant]
     Indication: DIABETES MELLITUS
  3. METFORMINMETFORMIN [Concomitant]
     Indication: DIABETES MELLITUS
  4. HUMALOGHUMALOG [Concomitant]
     Indication: DIABETES MELLITUS
     Dosage: (10[ARB^U])
  5. TEPEZZA [Suspect]
     Active Substance: TEPROTUMUMAB-TRBW
     Indication: ENDOCRINE OPHTHALMOPATHY
     Route: 050
     Dates: start: 202005, end: 20200805

REACTIONS (2)
  - Diabetes mellitus inadequate control [Not Recovered/Not Resolved]
  - Onychoclasis [Not Recovered/Not Resolved]
